FAERS Safety Report 22382690 (Version 1)
Quarter: 2023Q2

REPORT INFORMATION
  Report Type: Spontaneous
  Country: SI (occurrence: SI)
  Receive Date: 20230530
  Receipt Date: 20230530
  Transmission Date: 20230721
  Serious: Yes (Other)
  Sender: FDA-Public Use
  Company Number: SI-AMGEN-SVNSP2023090355

PATIENT
  Age: 25 Year
  Sex: Male

DRUGS (1)
  1. ADALIMUMAB [Suspect]
     Active Substance: ADALIMUMAB
     Indication: Crohn^s disease
     Route: 065

REACTIONS (7)
  - Bile duct stone [Unknown]
  - Crohn^s disease [Unknown]
  - Biliary obstruction [Unknown]
  - Biliary sepsis [Unknown]
  - Pneumonia klebsiella [Unknown]
  - Fibrosis [Unknown]
  - Liver function test increased [Unknown]
